FAERS Safety Report 8671674 (Version 2)
Quarter: 2012Q4

REPORT INFORMATION
  Report Type: 
  Country: US (occurrence: US)
  Receive Date: 20120718
  Receipt Date: 20120914
  Transmission Date: 20130627
  Serious: Yes (Hospitalization)
  Sender: FDA-Public Use
  Company Number: US-B.I. PHARMACEUTICALS,INC./RIDGEFIELD-2012-BP-15720BP

PATIENT
  Age: 82 Year
  Sex: Female
  Weight: 74.39 kg

DRUGS (6)
  1. PRADAXA [Suspect]
     Indication: ATRIAL FIBRILLATION
     Dosage: 300 mg
     Route: 048
     Dates: start: 20110712, end: 201206
  2. NORVASC [Concomitant]
     Indication: HYPERTENSION
     Dosage: 5 mg
     Route: 048
  3. SPIRONOLACTONE [Concomitant]
     Indication: HYPERTENSION
     Dosage: 25 mg
     Route: 048
  4. LASIX [Concomitant]
     Indication: CARDIAC FAILURE CONGESTIVE
     Route: 048
  5. POTASSIUM CHLORIDE [Concomitant]
     Indication: CARDIAC FAILURE CONGESTIVE
     Dosage: 20 mEq
     Route: 048
  6. MICARDIS [Concomitant]
     Dosage: 40 mg

REACTIONS (4)
  - Embolic stroke [Recovered/Resolved]
  - Carotid artery occlusion [Recovered/Resolved]
  - Hemiparesis [Recovered/Resolved]
  - Dysphagia [Not Recovered/Not Resolved]
